FAERS Safety Report 17996437 (Version 1)
Quarter: 2020Q3

REPORT INFORMATION
  Report Type: Spontaneous
  Country: US (occurrence: US)
  Receive Date: 20200709
  Receipt Date: 20200709
  Transmission Date: 20201103
  Serious: No
  Sender: FDA-Public Use
  Company Number: US-AMAG PHARMACEUTICALS, INC.-AMAG202002038

PATIENT
  Sex: Female

DRUGS (1)
  1. INTRAROSA [Suspect]
     Active Substance: PRASTERONE
     Dosage: PATIENT TAKES ONE INTRAROSA VAGINALLY EVERY NIGHT.
     Route: 067

REACTIONS (2)
  - Contraindicated product prescribed [Unknown]
  - Off label use [Unknown]
